FAERS Safety Report 11302880 (Version 2)
Quarter: 2015Q3

REPORT INFORMATION
  Report Type: Spontaneous
  Country: AR (occurrence: AR)
  Receive Date: 20150723
  Receipt Date: 20150810
  Transmission Date: 20151125
  Serious: Yes (Other)
  Sender: FDA-Public Use
  Company Number: CHPA2012AR018439

PATIENT
  Age: 57 Year
  Sex: Female

DRUGS (2)
  1. NICOTINELL [Suspect]
     Active Substance: NICOTINE
     Dosage: 4 MG, 2 BOXES DAILY (48 PER DAY)
     Route: 048
  2. NICOTINELL [Suspect]
     Active Substance: NICOTINE
     Indication: SMOKING CESSATION THERAPY
     Dosage: 2 MG, 2 BOXES DAILY (48 PER DAY)
     Route: 048

REACTIONS (10)
  - Anxiety [Not Recovered/Not Resolved]
  - Tachycardia [Recovered/Resolved]
  - Dizziness [Recovered/Resolved]
  - Oxygen saturation decreased [Unknown]
  - Chronic obstructive pulmonary disease [Unknown]
  - Headache [Unknown]
  - Laryngitis [Not Recovered/Not Resolved]
  - Incorrect dose administered [Unknown]
  - Drug dependence [Unknown]
  - Feeling of despair [Not Recovered/Not Resolved]
